FAERS Safety Report 4328629-X (Version None)
Quarter: 2004Q1

REPORT INFORMATION
  Report Type: 
  Country: None (occurrence: None)
  Receive Date: 20040324
  Receipt Date: 20040309
  Transmission Date: 20041129
  Serious: No
  Sender: FDA-Public Use
  Company Number: CART-10325

PATIENT
  Age: 31 Year
  Sex: Female

DRUGS (1)
  1. CARTICEL [Suspect]
     Indication: ARTHROPATHY
     Dosage: 1 NA ONCE IS
     Dates: start: 20020618, end: 20020618

REACTIONS (3)
  - BONE DISORDER [None]
  - CHONDROPATHY [None]
  - PATELLOFEMORAL PAIN SYNDROME [None]
